FAERS Safety Report 4562992-X (Version None)
Quarter: 2005Q1

REPORT INFORMATION
  Report Type: 
  Country: None (occurrence: None)
  Receive Date: 20050121
  Receipt Date: 20050112
  Transmission Date: 20050727
  Serious: Yes (Other)
  Sender: FDA-Public Use
  Company Number: 2005011265

PATIENT
  Age: 37 Year
  Sex: Male

DRUGS (3)
  1. ZELDOX (CAPSULES) (ZIPRASIDONE) [Suspect]
     Indication: SCHIZOPHRENIA
     Dosage: 40 MG (40 MG, 1 IN 1 D), ORAL
     Route: 048
     Dates: start: 20040527, end: 20040901
  2. VENLAFAXINE HCL [Concomitant]
  3. OXAZEPAM [Concomitant]

REACTIONS (3)
  - INFECTION [None]
  - RASH GENERALISED [None]
  - RASH MACULO-PAPULAR [None]
